FAERS Safety Report 22050689 (Version 1)
Quarter: 2023Q1

REPORT INFORMATION
  Report Type: Spontaneous
  Country: AU (occurrence: AU)
  Receive Date: 20230301
  Receipt Date: 20230301
  Transmission Date: 20230417
  Serious: Yes (Other)
  Sender: FDA-Public Use
  Company Number: AU-PFIZER INC-PV202300039767

PATIENT

DRUGS (4)
  1. INFLIXIMAB [Suspect]
     Active Substance: INFLIXIMAB
     Dosage: UNK
     Route: 065
  2. ADALIMUMAB [Suspect]
     Active Substance: ADALIMUMAB
     Dosage: UNK
     Route: 065
  3. METHOTREXATE SODIUM [Suspect]
     Active Substance: METHOTREXATE SODIUM
     Dosage: UNK
     Route: 065
  4. SECUKINUMAB [Suspect]
     Active Substance: SECUKINUMAB
     Dosage: UNK
     Route: 065

REACTIONS (8)
  - PASH syndrome [Unknown]
  - Pyoderma [Unknown]
  - Seronegative arthritis [Unknown]
  - Condition aggravated [Unknown]
  - Pyogenic sterile arthritis pyoderma gangrenosum and acne syndrome [Unknown]
  - Acne [Unknown]
  - Drug ineffective [Unknown]
  - Product use in unapproved indication [Unknown]
